FAERS Safety Report 10531700 (Version 1)
Quarter: 2014Q4

REPORT INFORMATION
  Report Type: Report from Study
  Country: AR (occurrence: AR)
  Receive Date: 20141021
  Receipt Date: 20141021
  Transmission Date: 20150529
  Serious: Yes (Hospitalization)
  Sender: FDA-Public Use
  Company Number: PHHY2014AR136693

PATIENT
  Sex: Male

DRUGS (2)
  1. DIOVAN [Suspect]
     Active Substance: VALSARTAN
     Indication: HYPERTENSION
     Dosage: 320 (UNIT NOT SPECIFIED), QD
     Route: 048
  2. EXFORGE [Suspect]
     Active Substance: AMLODIPINE BESYLATE\VALSARTAN
     Indication: HYPERTENSION
     Dosage: 1 DF (320 VAL/10 AML UNIT UNSPECIFIED), QD
     Route: 048

REACTIONS (2)
  - Blood pressure increased [Not Recovered/Not Resolved]
  - Spinal column injury [Not Recovered/Not Resolved]
